FAERS Safety Report 8958516 (Version 1)
Quarter: 2012Q4

REPORT INFORMATION
  Report Type: Spontaneous
  Country: US (occurrence: None)
  Receive Date: 20121205
  Receipt Date: 20121205
  Transmission Date: 20130627
  Serious: Yes (Other)
  Sender: FDA-Public Use
  Company Number: None

PATIENT
  Age: 44 Year
  Sex: Male
  Weight: 89.27 kg

DRUGS (1)
  1. LEXAPRO 20MG - GENERIC [Suspect]
     Indication: DEPRESSION
     Dosage: 20 mg  1 QAM

REACTIONS (1)
  - Dizziness [None]
